FAERS Safety Report 4268619-9 (Version None)
Quarter: 2004Q1

REPORT INFORMATION
  Report Type: 
  Country: None (occurrence: None)
  Receive Date: 20040108
  Receipt Date: 20031226
  Transmission Date: 20041129
  Serious: Yes (Death)
  Sender: FDA-Public Use
  Company Number: 200321605GDDC

PATIENT
  Age: 75 Year
  Sex: Female

DRUGS (2)
  1. RIFAMPICIN [Suspect]
     Dosage: QD PO
     Route: 048
     Dates: start: 20010601, end: 20010701
  2. ISONIAZID [Suspect]
     Dosage: PO
     Route: 048
     Dates: start: 20010601, end: 20010701

REACTIONS (1)
  - TOXIC EPIDERMAL NECROLYSIS [None]
